FAERS Safety Report 8042244-6 (Version None)
Quarter: 2012Q1

REPORT INFORMATION
  Report Type: 
  Country: None (occurrence: None)
  Receive Date: 20120112
  Receipt Date: 20120109
  Transmission Date: 20120608
  Serious: Yes (Death)
  Sender: FDA-Public Use
  Company Number: RU-SANOFI-AVENTIS-2011SA036862

PATIENT
  Age: 73 Year
  Sex: Male
  Weight: 89.5 kg

DRUGS (7)
  1. DOCETAXEL [Suspect]
     Route: 041
     Dates: start: 20110503, end: 20110503
  2. PREDNISONE TAB [Suspect]
     Route: 065
     Dates: start: 20110321, end: 20110410
  3. BLINDED THERAPY [Suspect]
     Route: 048
     Dates: start: 20110503, end: 20110516
  4. ASPIRIN [Concomitant]
     Indication: THROMBOSIS PROPHYLAXIS
     Route: 048
     Dates: start: 20110321, end: 20110516
  5. PREDNISONE TAB [Suspect]
     Indication: PROSTATE CANCER
     Route: 065
     Dates: start: 20110503, end: 20110516
  6. BLINDED THERAPY [Suspect]
     Indication: PROSTATE CANCER
     Route: 048
     Dates: start: 20110321, end: 20110403
  7. DOCETAXEL [Suspect]
     Indication: PROSTATE CANCER
     Route: 041
     Dates: start: 20110321, end: 20110321

REACTIONS (1)
  - PNEUMONIA [None]
